FAERS Safety Report 19648090 (Version 1)
Quarter: 2021Q3

REPORT INFORMATION
  Report Type: Spontaneous
  Country: AT (occurrence: AT)
  Receive Date: 20210803
  Receipt Date: 20210803
  Transmission Date: 20211014
  Serious: Yes (Other)
  Sender: FDA-Public Use
  Company Number: AT-RK PHARMA, INC-20210700009

PATIENT

DRUGS (1)
  1. PALIPERIDONE ER UNSPECIFIED [Suspect]
     Active Substance: PALIPERIDONE

REACTIONS (1)
  - Rhabdomyolysis [Recovered/Resolved]
